FAERS Safety Report 9687680 (Version 1)
Quarter: 2013Q4

REPORT INFORMATION
  Report Type: Spontaneous
  Country: US (occurrence: US)
  Receive Date: 20131114
  Receipt Date: 20131114
  Transmission Date: 20140711
  Serious: No
  Sender: FDA-Public Use
  Company Number: US-PFIZER INC-2013324825

PATIENT
  Age: 60 Year
  Sex: Female
  Weight: 85.71 kg

DRUGS (13)
  1. CHANTIX [Suspect]
     Indication: SMOKING CESSATION THERAPY
     Dosage: UNK
  2. CHANTIX [Interacting]
     Dosage: 0.5 MG, UNK
     Dates: start: 201310, end: 2013
  3. CHANTIX [Interacting]
     Dosage: 1 MG, 2X/DAY
     Dates: start: 2013, end: 2013
  4. CHANTIX [Interacting]
     Dosage: UNK
     Dates: start: 2013
  5. GABAPENTIN [Interacting]
     Indication: FIBROMYALGIA
     Dosage: 900 MG, 2X/DAY
  6. LAMOTRIGINE [Interacting]
     Indication: BIPOLAR II DISORDER
     Dosage: 25 MG, 2X/DAY
  7. LISINOPRIL [Interacting]
     Dosage: 20 MG, DAILY
  8. METFORMIN HCL [Interacting]
     Dosage: 500 MG, 2X/DAY
  9. METOPROLOL TARTRATE [Interacting]
     Indication: HYPERTENSION
     Dosage: 50 MG, 2X/DAY
  10. OMEPRAZOLE [Interacting]
     Indication: GASTROOESOPHAGEAL REFLUX DISEASE
     Dosage: 20 MG, 2X/DAY
  11. SIMVASTATIN [Interacting]
     Dosage: 40 MG, DAILY
  12. CYMBALTA [Interacting]
     Indication: DEPRESSION
     Dosage: 60 MG, DAILY
  13. CYMBALTA [Interacting]
     Indication: FIBROMYALGIA

REACTIONS (5)
  - Drug interaction [Unknown]
  - Nausea [Unknown]
  - Vomiting [Unknown]
  - Headache [Not Recovered/Not Resolved]
  - Activities of daily living impaired [Unknown]
